FAERS Safety Report 22053049 (Version 3)
Quarter: 2023Q1

REPORT INFORMATION
  Report Type: Report from Study
  Country: US (occurrence: US)
  Receive Date: 20230302
  Receipt Date: 20230312
  Transmission Date: 20230418
  Serious: No
  Sender: FDA-Public Use
  Company Number: US-002147023-NVSC2023US046391

PATIENT
  Age: 68 Year
  Sex: Female

DRUGS (2)
  1. VIJOICE [Suspect]
     Active Substance: ALPELISIB
     Indication: Malformation venous
     Dosage: 50 MG, QD
     Route: 048
     Dates: start: 20230216, end: 20230224
  2. HEPARIN [Concomitant]
     Active Substance: HEPARIN SODIUM
     Indication: Product used for unknown indication
     Dosage: UNK
     Route: 042

REACTIONS (3)
  - Swelling [Recovered/Resolved]
  - Coagulopathy [Unknown]
  - Nausea [Unknown]

NARRATIVE: CASE EVENT DATE: 20230216
